FAERS Safety Report 6661367-7 (Version None)
Quarter: 2010Q1

REPORT INFORMATION
  Report Type: 
  Country: None (occurrence: None)
  Receive Date: 20100331
  Receipt Date: 20100323
  Transmission Date: 20100710
  Serious: Yes (Hospitalization)
  Sender: FDA-Public Use
  Company Number: PHHY2010US18453

PATIENT
  Sex: Female

DRUGS (1)
  1. FEMARA [Suspect]
     Dosage: 2.5 MG, QD
     Route: 048

REACTIONS (5)
  - COLON NEOPLASM [None]
  - COLON POLYPECTOMY [None]
  - COLONIC POLYP [None]
  - STAPHYLOCOCCAL INFECTION [None]
  - TUMOUR EXCISION [None]
